FAERS Safety Report 5352344-7 (Version None)
Quarter: 2007Q2

REPORT INFORMATION
  Report Type: 
  Country: None (occurrence: None)
  Receive Date: 20070521
  Receipt Date: 20070216
  Transmission Date: 20071010
  Serious: No
  Sender: FDA-Public Use
  Company Number: WAES 0702USA03413

PATIENT
  Age: 74 Year
  Sex: Female

DRUGS (6)
  1. JANUVIA [Suspect]
     Indication: DIABETES MELLITUS
     Dosage: 100 MG/DAILY/PO
     Route: 048
     Dates: start: 20070101, end: 20070101
  2. JANUVIA [Suspect]
     Indication: DIABETES MELLITUS
     Dosage: 100 MG/DAILY/PO
     Route: 048
     Dates: start: 20070101, end: 20070101
  3. GLUCOPHAGE [Concomitant]
  4. LIPITOR [Concomitant]
  5. NADOLOL [Concomitant]
  6. SPIRONOLACTONE [Concomitant]

REACTIONS (2)
  - DRUG INEFFECTIVE [None]
  - UPPER RESPIRATORY TRACT INFECTION [None]
